FAERS Safety Report 7677934-8 (Version None)
Quarter: 2011Q3

REPORT INFORMATION
  Report Type: 
  Country: None (occurrence: None)
  Receive Date: 20110811
  Receipt Date: 20110729
  Transmission Date: 20111222
  Serious: Yes (Death, Hospitalization, Other)
  Sender: FDA-Public Use
  Company Number: US-ACTELION-A-US2011-52218

PATIENT

DRUGS (4)
  1. TRACLEER [Suspect]
     Dosage: UNK MG, BID
     Route: 048
     Dates: start: 20110701
  2. TRACLEER [Suspect]
     Indication: PULMONARY ARTERIAL HYPERTENSION
     Dosage: 125 MG, BID
     Route: 048
     Dates: end: 20110701
  3. TRACLEER [Suspect]
     Dosage: UNK MG, BID
     Route: 048
     Dates: start: 20091009, end: 20110701
  4. TRACLEER [Suspect]
     Dosage: 250 MG, BID, 3 DAYS
     Route: 048
     Dates: start: 20110701, end: 20110701

REACTIONS (4)
  - CARDIAC PACEMAKER INSERTION [None]
  - MEDICATION ERROR [None]
  - DEATH [None]
  - HALLUCINATION [None]
